FAERS Safety Report 9246288 (Version 1)
Quarter: 2013Q2

REPORT INFORMATION
  Report Type: Report from Study
  Country: US (occurrence: US)
  Receive Date: 20130422
  Receipt Date: 20130422
  Transmission Date: 20140414
  Serious: No
  Sender: FDA-Public Use
  Company Number: US-ABBOTT-12P-163-0929719-00

PATIENT
  Age: 8 Year
  Sex: Male
  Weight: 32.69 kg

DRUGS (7)
  1. RISPERDAL [Concomitant]
     Indication: PRODUCT USED FOR UNKNOWN INDICATION
  2. FLOVENT [Concomitant]
     Indication: PRODUCT USED FOR UNKNOWN INDICATION
  3. ALBUTEROL [Concomitant]
     Indication: PRODUCT USED FOR UNKNOWN INDICATION
  4. ZYRTEC [Concomitant]
     Indication: PRODUCT USED FOR UNKNOWN INDICATION
  5. ADDERALL [Concomitant]
     Indication: PRODUCT USED FOR UNKNOWN INDICATION
  6. SINGULAIR [Concomitant]
     Indication: PRODUCT USED FOR UNKNOWN INDICATION
  7. LUPRON DEPOT-PED 11.25 MG [Suspect]
     Indication: PRECOCIOUS PUBERTY
     Dates: start: 201204

REACTIONS (3)
  - Rash [Not Recovered/Not Resolved]
  - Rash macular [Not Recovered/Not Resolved]
  - Rash [Not Recovered/Not Resolved]
